FAERS Safety Report 19490614 (Version 2)
Quarter: 2021Q3

REPORT INFORMATION
  Report Type: Report from Study
  Country: US (occurrence: US)
  Receive Date: 20210705
  Receipt Date: 20210707
  Transmission Date: 20211014
  Serious: Yes (Other)
  Sender: FDA-Public Use
  Company Number: US-SA-2021SA110906

PATIENT
  Age: 73 Year
  Sex: Male

DRUGS (1)
  1. DUPILUMAB [Suspect]
     Active Substance: DUPILUMAB
     Indication: NASAL POLYPS
     Dosage: 300 MG, QOW
     Route: 058
     Dates: start: 20210406

REACTIONS (8)
  - Malaise [Unknown]
  - Neoplasm malignant [Not Recovered/Not Resolved]
  - Fatigue [Unknown]
  - Injection site mass [Unknown]
  - Swelling [Recovered/Resolved]
  - Therapeutic response decreased [Unknown]
  - Injection site pain [Unknown]
  - Hypoacusis [Unknown]

NARRATIVE: CASE EVENT DATE: 2021
